FAERS Safety Report 4342615-5 (Version None)
Quarter: 2004Q2

REPORT INFORMATION
  Report Type: 
  Country: None (occurrence: None)
  Receive Date: 20040420
  Receipt Date: 20040420
  Transmission Date: 20050107
  Serious: Yes (Life-Threatening, Hospitalization)
  Sender: FDA-Public Use
  Company Number: None

PATIENT
  Age: 49 Year
  Sex: Male
  Weight: 79.3795 kg

DRUGS (2)
  1. EFFEXOR XR [Suspect]
     Indication: DEPRESSION
     Dosage: ONE DAY ORAL
     Route: 048
     Dates: start: 20031101, end: 20040101
  2. PAXIL [Suspect]
     Indication: DEPRESSION
     Dosage: ONE DAY ORAL
     Route: 048
     Dates: start: 20040101, end: 20040203

REACTIONS (5)
  - CONDITION AGGRAVATED [None]
  - DEPRESSION [None]
  - HOSTILITY [None]
  - IRRITABILITY [None]
  - SUICIDE ATTEMPT [None]
